FAERS Safety Report 21249339 (Version 1)
Quarter: 2022Q3

REPORT INFORMATION
  Report Type: Spontaneous
  Country: US (occurrence: US)
  Receive Date: 20220824
  Receipt Date: 20220824
  Transmission Date: 20221026
  Serious: Yes (Other)
  Sender: FDA-Public Use
  Company Number: US-AMERICAN REGENT INC-2022002444

PATIENT
  Sex: Female
  Weight: 58.503 kg

DRUGS (3)
  1. VENOFER [Suspect]
     Active Substance: IRON SUCROSE
     Indication: Iron deficiency anaemia
     Dosage: 500 MILLIGRAM DILUTE IN 250ML SODIUM CHLORIDE (HIGH DOSE)
     Route: 042
     Dates: start: 20220722, end: 20220722
  2. VENOFER [Suspect]
     Active Substance: IRON SUCROSE
     Dosage: 500 MILLIGRAM DILUTE IN 250ML SODIUM CHLORIDE (HIGH DOSE)
     Route: 042
     Dates: start: 20220725, end: 20220725
  3. DEXAMETHASONE [Concomitant]
     Active Substance: DEXAMETHASONE
     Indication: Premedication
     Dosage: 8 MILLIGRAM
     Dates: start: 20220725, end: 20220725

REACTIONS (5)
  - Burning sensation [Recovering/Resolving]
  - Urticaria [Recovering/Resolving]
  - Maternal exposure during pregnancy [Unknown]
  - Incorrect product administration duration [Unknown]
  - Inappropriate schedule of product administration [Unknown]

NARRATIVE: CASE EVENT DATE: 20220722
